FAERS Safety Report 9653487 (Version 1)
Quarter: 2013Q4

REPORT INFORMATION
  Report Type: Spontaneous
  Country: CA (occurrence: US)
  Receive Date: 20131029
  Receipt Date: 20131029
  Transmission Date: 20140711
  Serious: Yes (Other)
  Sender: FDA-Public Use
  Company Number: US-TEVA-440871USA

PATIENT
  Sex: Female

DRUGS (1)
  1. MODAFINIL [Suspect]
     Dosage: 200 MILLIGRAM DAILY;
     Dates: start: 2006

REACTIONS (3)
  - Cognitive disorder [Unknown]
  - Disturbance in attention [Unknown]
  - Nervous system disorder [Unknown]
